FAERS Safety Report 4727386-2 (Version None)
Quarter: 2005Q3

REPORT INFORMATION
  Report Type: 
  Country: None (occurrence: None)
  Receive Date: 20050727
  Receipt Date: 20050727
  Transmission Date: 20060218
  Serious: Yes (Death, Hospitalization)
  Sender: FDA-Public Use
  Company Number: None

PATIENT
  Age: 80 Year
  Sex: Female
  Weight: 28.8 kg

DRUGS (16)
  1. METHOTREXATE [Suspect]
     Indication: RHEUMATOID ARTHRITIS
     Dosage: 12.5 MG PO DAILY [CHRONIC]
     Route: 048
  2. PREDNISONE [Concomitant]
  3. DIGOXIN [Concomitant]
  4. METOPROLOL [Concomitant]
  5. PLAQUENIL [Concomitant]
  6. AGGRENOX [Concomitant]
  7. TYLENOL (CAPLET) [Concomitant]
  8. OSCAL +D [Concomitant]
  9. IMUDIUM [Concomitant]
  10. LOC [Concomitant]
  11. OXYCODONE [Concomitant]
  12. ALBUTEROL [Concomitant]
  13. MAGIC MOUTHWASH [Concomitant]
  14. ACTONEL [Concomitant]
  15. ENOXAPARIN SODIUM [Concomitant]
  16. PRILOSEC [Concomitant]

REACTIONS (11)
  - BLOOD CULTURE POSITIVE [None]
  - CULTURE URINE POSITIVE [None]
  - FELTY'S SYNDROME [None]
  - HIP FRACTURE [None]
  - LOSS OF CONSCIOUSNESS [None]
  - LUNG INFECTION PSEUDOMONAL [None]
  - MALNUTRITION [None]
  - PANCYTOPENIA [None]
  - PNEUMONIA [None]
  - PSEUDOMONAS INFECTION [None]
  - SEPSIS [None]
